FAERS Safety Report 18946303 (Version 12)
Quarter: 2025Q1

REPORT INFORMATION
  Report Type: Spontaneous
  Country: US (occurrence: US)
  Receive Date: 20210226
  Receipt Date: 20250120
  Transmission Date: 20250408
  Serious: Yes (Other)
  Sender: PFIZER
  Company Number: US-PFIZER INC-2019495416

PATIENT
  Age: 47 Year
  Sex: Female
  Weight: 83.9 kg

DRUGS (6)
  1. IBRANCE [Suspect]
     Active Substance: PALBOCICLIB
     Indication: Breast cancer metastatic
     Dates: start: 2015
  2. IBRANCE [Suspect]
     Active Substance: PALBOCICLIB
     Dosage: 100 MG, 1X/DAY (TAKE 1 TABLET BY MOUTH ONE TIME DAILY)
     Route: 048
  3. IBRANCE [Suspect]
     Active Substance: PALBOCICLIB
  4. IBRANCE [Suspect]
     Active Substance: PALBOCICLIB
     Route: 048
  5. FASLODEX [Concomitant]
     Active Substance: FULVESTRANT
     Dates: start: 2015
  6. XGEVA [Concomitant]
     Active Substance: DENOSUMAB
     Dates: start: 2015

REACTIONS (4)
  - Cerebrovascular accident [Unknown]
  - Neoplasm progression [Unknown]
  - White blood cell count decreased [Not Recovered/Not Resolved]
  - Off label use [Unknown]

NARRATIVE: CASE EVENT DATE: 20150101
